FAERS Safety Report 4886890-7 (Version None)
Quarter: 2006Q1

REPORT INFORMATION
  Report Type: 
  Country: None (occurrence: None)
  Receive Date: 20060119
  Receipt Date: 20051213
  Transmission Date: 20060701
  Serious: Yes (Other)
  Sender: FDA-Public Use
  Company Number: 2006BH000442

PATIENT
  Sex: 0

DRUGS (2)
  1. METHYLPREDNISOLONE [Suspect]
     Indication: PROPHYLAXIS OF NAUSEA AND VOMITING
     Dosage: 48 MG; PO
     Route: 048
  2. ONDANSETRON [Suspect]
     Dosage: 8 MG;2X A DAY

REACTIONS (1)
  - CONSTIPATION [None]
